FAERS Safety Report 12465065 (Version 2)
Quarter: 2016Q2

REPORT INFORMATION
  Report Type: Spontaneous
  Country: JP (occurrence: JP)
  Receive Date: 20160614
  Receipt Date: 20160622
  Transmission Date: 20160815
  Serious: Yes (Other)
  Sender: FDA-Public Use
  Company Number: JP-PFIZER INC-2016299764

PATIENT
  Age: 55 Year
  Sex: Female

DRUGS (5)
  1. ETOPOSIDE. [Suspect]
     Active Substance: ETOPOSIDE
     Indication: RECURRENT CANCER
  2. ADRIACIN [Suspect]
     Active Substance: DOXORUBICIN HYDROCHLORIDE
     Indication: RECURRENT CANCER
  3. CISPLATIN. [Suspect]
     Active Substance: CISPLATIN
     Indication: RECURRENT CANCER
  4. MITOTANE [Suspect]
     Active Substance: MITOTANE
     Indication: RECURRENT CANCER
     Route: 048
  5. ZOLEDRONIC ACID HYDRATE [Suspect]
     Active Substance: ZOLEDRONIC ACID
     Indication: RECURRENT CANCER

REACTIONS (2)
  - Stomatitis [Unknown]
  - Febrile neutropenia [Unknown]
